FAERS Safety Report 8050179-8 (Version None)
Quarter: 2012Q1

REPORT INFORMATION
  Report Type: 
  Country: None (occurrence: None)
  Receive Date: 20120117
  Receipt Date: 20120105
  Transmission Date: 20120608
  Serious: Yes (Hospitalization)
  Sender: FDA-Public Use
  Company Number: FR-MERCK-1112FRA00101

PATIENT
  Age: 68 Year
  Sex: Male

DRUGS (4)
  1. METFORMIN HYDROCHLORIDE [Concomitant]
     Indication: TYPE 2 DIABETES MELLITUS
     Route: 048
     Dates: start: 20100213
  2. GLYBURIDE [Concomitant]
     Indication: TYPE 2 DIABETES MELLITUS
     Route: 048
     Dates: start: 20100213, end: 20110910
  3. GLYBURIDE [Concomitant]
     Route: 048
     Dates: start: 20110911
  4. JANUVIA [Suspect]
     Indication: TYPE 2 DIABETES MELLITUS
     Route: 048
     Dates: start: 20101208, end: 20110910

REACTIONS (2)
  - HYPOGLYCAEMIA [None]
  - CEREBROVASCULAR ACCIDENT [None]
